FAERS Safety Report 4742134-8 (Version None)
Quarter: 2005Q3

REPORT INFORMATION
  Report Type: 
  Country: None (occurrence: None)
  Receive Date: 20050808
  Receipt Date: 20050729
  Transmission Date: 20060218
  Serious: Yes (Hospitalization)
  Sender: FDA-Public Use
  Company Number: 2005082071

PATIENT
  Age: 76 Year
  Sex: Male

DRUGS (4)
  1. LIPITOR [Suspect]
     Indication: HYPERCHOLESTEROLAEMIA
     Dosage: 10 MG , ORAL
     Route: 048
  2. BASEN (VOGLIBOSE) [Suspect]
     Indication: DIABETES MELLITUS
     Dosage: ORAL
     Route: 048
  3. KETAS (IBUDILAST) [Suspect]
     Indication: ILL-DEFINED DISORDER
  4. TICLOPIDINE HCL [Concomitant]

REACTIONS (4)
  - ANTINEUTROPHIL CYTOPLASMIC ANTIBODY POSITIVE [None]
  - AUTOIMMUNE DISORDER [None]
  - BILIARY CIRRHOSIS PRIMARY [None]
  - LIVER DISORDER [None]
